FAERS Safety Report 5382659-8 (Version None)
Quarter: 2007Q3

REPORT INFORMATION
  Report Type: 
  Country: None (occurrence: None)
  Receive Date: 20070710
  Receipt Date: 20070629
  Transmission Date: 20080115
  Serious: Yes (Hospitalization)
  Sender: FDA-Public Use
  Company Number: US-JNJFOC-20070505121

PATIENT
  Sex: Male
  Weight: 69.1 kg

DRUGS (7)
  1. DOXORUBICIN HCL [Suspect]
     Indication: MULTIPLE MYELOMA
     Dosage: DAY 1,15
     Route: 042
     Dates: start: 20060905, end: 20070511
  2. VELCADE [Suspect]
     Indication: MULTIPLE MYELOMA
     Dosage: DAY 1,4,15,18
     Route: 042
     Dates: start: 20060905, end: 20070511
  3. THALIDOMIDE [Suspect]
     Indication: MULTIPLE MYELOMA
     Route: 048
     Dates: start: 20060905, end: 20070515
  4. ACYCLOVIR [Concomitant]
     Route: 065
  5. COUMADIN [Concomitant]
     Route: 065
  6. DIOVAN [Concomitant]
     Route: 065
  7. LORTAB [Concomitant]
     Dosage: AS NECESSARY
     Route: 065

REACTIONS (1)
  - BRADYCARDIA [None]
